FAERS Safety Report 10944706 (Version 1)
Quarter: 2015Q1

REPORT INFORMATION
  Report Type: Spontaneous
  Country: AU (occurrence: AU)
  Receive Date: 20150323
  Receipt Date: 20150323
  Transmission Date: 20150721
  Serious: Yes (Hospitalization)
  Sender: FDA-Public Use
  Company Number: PHHY2015AU033949

PATIENT
  Age: 25 Year
  Sex: Male

DRUGS (2)
  1. BUPRENORPHINE [Suspect]
     Active Substance: BUPRENORPHINE
     Indication: DRUG DEPENDENCE
     Dosage: 16 MG, QD
     Route: 065
  2. LORAZEPAM. [Suspect]
     Active Substance: LORAZEPAM
     Indication: PRODUCT USED FOR UNKNOWN INDICATION
     Dosage: 40 DF, UNK
     Route: 065

REACTIONS (13)
  - Echolalia [Unknown]
  - Psychotic disorder [Unknown]
  - Agitation [Unknown]
  - Overdose [Unknown]
  - Poisoning [Unknown]
  - Mental disorder [Unknown]
  - Persecutory delusion [Unknown]
  - Distractibility [Unknown]
  - Aggression [Unknown]
  - Depression [Unknown]
  - Affect lability [Unknown]
  - Abnormal behaviour [Unknown]
  - Hallucination, auditory [Unknown]
